FAERS Safety Report 21315882 (Version 1)
Quarter: 2022Q3

REPORT INFORMATION
  Report Type: Report from Study
  Country: DE (occurrence: DE)
  Receive Date: 20220910
  Receipt Date: 20220910
  Transmission Date: 20221026
  Serious: Yes (Hospitalization)
  Sender: FDA-Public Use
  Company Number: DE-CELLTRION INC.-2022DE014362

PATIENT

DRUGS (8)
  1. TRUXIMA [Suspect]
     Active Substance: RITUXIMAB-ABBS
     Indication: Rheumatoid arthritis
     Dosage: 1000 MILLIGRAM
     Dates: start: 201711
  2. RITUXIMAB [Suspect]
     Active Substance: RITUXIMAB
     Indication: Rheumatoid arthritis
     Dosage: 1000 MILLIGRAM
     Dates: start: 201809
  3. RITUXIMAB [Suspect]
     Active Substance: RITUXIMAB
     Dosage: 1000 MILLIGRAM
     Dates: start: 201909
  4. MABTHERA [Suspect]
     Active Substance: RITUXIMAB
     Indication: Rheumatoid arthritis
     Dosage: 1000 MILLIGRAM
     Dates: start: 201603
  5. MABTHERA [Suspect]
     Active Substance: RITUXIMAB
     Dosage: 1000 MILLIGRAM
     Dates: start: 201609
  6. MABTHERA [Suspect]
     Active Substance: RITUXIMAB
     Dosage: 1000 MILLIGRAM
     Dates: start: 201704
  7. METHOTREXATE [Suspect]
     Active Substance: METHOTREXATE
     Indication: Rheumatoid arthritis
     Dosage: 5 MILLIGRAM
     Dates: start: 20160926
  8. METHOTREXATE [Suspect]
     Active Substance: METHOTREXATE
     Dosage: 5 MILLIGRAM
     Dates: start: 20170412

REACTIONS (3)
  - Gastritis [Not Recovered/Not Resolved]
  - Hepatic enzyme increased [Unknown]
  - Hepatitis A [Unknown]

NARRATIVE: CASE EVENT DATE: 20190801
